FAERS Safety Report 7465605-2 (Version None)
Quarter: 2011Q2

REPORT INFORMATION
  Report Type: 
  Country: None (occurrence: None)
  Receive Date: 20110509
  Receipt Date: 20110428
  Transmission Date: 20111010
  Serious: Yes (Hospitalization)
  Sender: FDA-Public Use
  Company Number: US-B.I. PHARMACEUTICALS,INC./RIDGEFIELD-2011-DE-01865GD

PATIENT
  Sex: Male

DRUGS (1)
  1. DABIGATRAN ETEXILATE [Suspect]
     Dosage: 300 MG
     Route: 048

REACTIONS (6)
  - GASTROINTESTINAL HAEMORRHAGE [None]
  - ASTHENIA [None]
  - MELAENA [None]
  - MEDICATION ERROR [None]
  - HAEMOGLOBIN DECREASED [None]
  - HAEMATOCRIT DECREASED [None]
